FAERS Safety Report 9266507 (Version 1)
Quarter: 2013Q2

REPORT INFORMATION
  Report Type: Report from Study
  Country: GB (occurrence: GB)
  Receive Date: 20130502
  Receipt Date: 20130502
  Transmission Date: 20140414
  Serious: Yes (Other)
  Sender: FDA-Public Use
  Company Number: GB-JNJFOC-20130414028

PATIENT
  Age: 54 Year
  Sex: Male

DRUGS (7)
  1. REMICADE [Suspect]
     Indication: PSORIASIS
     Route: 042
     Dates: start: 20100616
  2. CO-CODAMOL [Concomitant]
     Route: 065
     Dates: start: 20111110
  3. CELECOXIB [Concomitant]
     Route: 065
     Dates: start: 20111110
  4. FLUOXETINE [Concomitant]
     Route: 065
     Dates: start: 20111110
  5. AMLODIPINE [Concomitant]
     Route: 065
     Dates: start: 20111110
  6. LISINOPRIL [Concomitant]
     Route: 065
     Dates: start: 20111110
  7. IRBESARTAN [Concomitant]
     Route: 065
     Dates: start: 20111110

REACTIONS (1)
  - Basal cell carcinoma [Recovered/Resolved]
